FAERS Safety Report 8891688 (Version 1)
Quarter: 2012Q4

REPORT INFORMATION
  Report Type: 
  Country: US (occurrence: US)
  Receive Date: 20121107
  Receipt Date: 20121107
  Transmission Date: 20130627
  Serious: No
  Sender: FDA-Public Use
  Company Number: US-AMGEN-USASP2011058815

PATIENT
  Age: 57 Year
  Sex: Male

DRUGS (10)
  1. ENBREL [Suspect]
     Indication: PRODUCT USED FOR UNKNOWN INDICATION
     Dosage: 50 mg, 2 times/wk
     Route: 058
  2. HYZAAR [Concomitant]
     Route: 048
  3. CLOBETASOL [Concomitant]
     Dosage: 0.05 %, UNK
     Route: 061
  4. AMLODIPINE [Concomitant]
     Dosage: 10 mg, UNK
     Route: 048
  5. NORVASC [Concomitant]
     Dosage: 10 mg, UNK
     Route: 048
  6. METFORMIN [Concomitant]
     Dosage: 500 mg, UNK
     Route: 048
  7. FLUTICASONE [Concomitant]
     Dosage: 0.05 %, UNK
     Route: 061
  8. MULTIVITAMIN                       /00097801/ [Concomitant]
     Route: 048
  9. CLARITIN                           /00413701/ [Concomitant]
     Dosage: 10 mg, UNK
     Route: 048
  10. ALEVE [Concomitant]
     Dosage: 220 mg, UNK
     Route: 048

REACTIONS (1)
  - Injection site reaction [Recovered/Resolved]
